FAERS Safety Report 4555457-2 (Version None)
Quarter: 2004Q4

REPORT INFORMATION
  Report Type: 
  Country: None (occurrence: None)
  Receive Date: 20041209
  Receipt Date: 20041020
  Transmission Date: 20050328
  Serious: Yes (Hospitalization)
  Sender: FDA-Public Use
  Company Number: LPH-US-04-00011

PATIENT
  Sex: Male

DRUGS (2)
  1. LORATADINE AND PSEUDOEPHEDRINE ER 24-HOUR (TABLETS) [Suspect]
     Dosage: 10MG/240MG PO QD
     Route: 048
     Dates: start: 20041013, end: 20041014
  2. PSEUDOEPHEDRINE (MANUFACTURER UNKNOWN) [Suspect]
     Dosage: 30MG
     Dates: start: 20041014, end: 20041014

REACTIONS (4)
  - ARRHYTHMIA [None]
  - DRUG INEFFECTIVE [None]
  - DRUG INTERACTION [None]
  - INTENTIONAL OVERDOSE [None]
